FAERS Safety Report 7984300-4 (Version None)
Quarter: 2011Q4

REPORT INFORMATION
  Report Type: 
  Country: None (occurrence: None)
  Receive Date: 20111216
  Receipt Date: 20111212
  Transmission Date: 20120403
  Serious: Yes (Other)
  Sender: FDA-Public Use
  Company Number: BE-GENZYME-MOZO-1000608

PATIENT
  Sex: Female
  Weight: 47 kg

DRUGS (1)
  1. MOZOBIL [Suspect]
     Indication: HAEMATOPOIETIC STEM CELL MOBILISATION
     Dosage: 0.6 ML, UNK
     Route: 058
     Dates: start: 20111207

REACTIONS (1)
  - HYPERSENSITIVITY [None]
